FAERS Safety Report 26145553 (Version 1)
Quarter: 2025Q4

REPORT INFORMATION
  Report Type: Report from Study
  Country: CN (occurrence: CN)
  Receive Date: 20251211
  Receipt Date: 20251211
  Transmission Date: 20260117
  Serious: Yes (Death)
  Sender: ROCHE
  Company Number: CN-ROCHE-10000457534

PATIENT
  Age: 53 Year
  Sex: Male

DRUGS (1)
  1. POLATUZUMAB VEDOTIN [Suspect]
     Active Substance: POLATUZUMAB VEDOTIN
     Indication: Diffuse large B-cell lymphoma
     Dosage: DOSAGE FORM 30 MG/VIAL
     Route: 042
     Dates: start: 20251021

REACTIONS (1)
  - Death [Fatal]

NARRATIVE: CASE EVENT DATE: 20251125
